FAERS Safety Report 15887744 (Version 2)
Quarter: 2019Q4

REPORT INFORMATION
  Report Type: Report from Study
  Country: US (occurrence: US)
  Receive Date: 20190130
  Receipt Date: 20191209
  Transmission Date: 20200122
  Serious: Yes (Hospitalization)
  Sender: FDA-Public Use
  Company Number: US-EMD SERONO-9068328

PATIENT
  Sex: Female

DRUGS (2)
  1. REBIF [Suspect]
     Active Substance: INTERFERON BETA-1A
     Indication: MULTIPLE SCLEROSIS
     Dosage: REBIJECT MINI
     Route: 058
     Dates: start: 20030124
  2. REBIF [Suspect]
     Active Substance: INTERFERON BETA-1A
     Dosage: REBIJECT MINI
     Route: 058
     Dates: start: 2006, end: 201812

REACTIONS (3)
  - Injection site erythema [Unknown]
  - Renal disorder [Unknown]
  - Injection site pruritus [Unknown]
